FAERS Safety Report 10196818 (Version 3)
Quarter: 2014Q2

REPORT INFORMATION
  Report Type: Spontaneous
  Country: DZ (occurrence: DZ)
  Receive Date: 20140527
  Receipt Date: 20140618
  Transmission Date: 20141212
  Serious: Yes (Death, Hospitalization)
  Sender: FDA-Public Use
  Company Number: DZ-PFIZER INC-2014141604

PATIENT
  Age: 23 Year
  Sex: Female

DRUGS (2)
  1. VFEND [Suspect]
     Indication: BRONCHOPULMONARY ASPERGILLOSIS
     Dosage: 6 MG/KG, 2X/DAY
     Route: 042
     Dates: start: 20140424, end: 20140425
  2. VFEND [Suspect]
     Dosage: 4 MG/KG, 2X/DAY
     Route: 042
     Dates: start: 20140425, end: 20140515

REACTIONS (2)
  - Encephalopathy [Fatal]
  - Sinus tachycardia [Not Recovered/Not Resolved]
